FAERS Safety Report 6743048-4 (Version None)
Quarter: 2010Q2

REPORT INFORMATION
  Report Type: 
  Country: None (occurrence: None)
  Receive Date: 20100527
  Receipt Date: 20100518
  Transmission Date: 20101027
  Serious: Yes (Hospitalization, Other)
  Sender: FDA-Public Use
  Company Number: US-SHIRE-ALL1-2010-02904

PATIENT

DRUGS (2)
  1. FOSRENOL [Suspect]
     Indication: HYPERPHOSPHATAEMIA
     Dosage: 1000 MG, (WITH EACH MEAL) DAILY
     Route: 048
     Dates: start: 20090701, end: 20100501
  2. FOSRENOL [Suspect]
     Dosage: 1500 MG, (100MG AND A HALF TABLET)WITH EACH MEAL) DAILY
     Route: 048
     Dates: start: 20100501

REACTIONS (4)
  - BLOOD CALCIUM DECREASED [None]
  - DRUG INEFFECTIVE [None]
  - POOR PERIPHERAL CIRCULATION [None]
  - TREMOR [None]
